FAERS Safety Report 4862088-3 (Version None)
Quarter: 2005Q4

REPORT INFORMATION
  Report Type: 
  Country: None (occurrence: None)
  Receive Date: 20051221
  Receipt Date: 20050908
  Transmission Date: 20060501
  Serious: Yes (Other)
  Sender: FDA-Public Use
  Company Number: US-BOEHRINGER INGELHEIM PHARMACEUTICALS, INC.-2005-BP-16244BP

PATIENT
  Sex: Female
  Weight: 74.84 kg

DRUGS (11)
  1. SPIRIVA [Suspect]
     Indication: RESPIRATORY DISORDER
     Route: 055
     Dates: start: 20040101
  2. AZITHROMYCIN [Suspect]
     Indication: SINUSITIS
     Route: 048
     Dates: start: 20050831
  3. AZITHROMYCIN [Suspect]
     Indication: LUNG INFECTION
  4. ARICEPT [Suspect]
     Indication: PARKINSON'S DISEASE
  5. ZETIA [Concomitant]
  6. FUROSEMIDE [Concomitant]
     Indication: HYPERTENSION
  7. POTASSIUM [Concomitant]
  8. NASONEX [Concomitant]
  9. ZANTAC [Concomitant]
  10. VERAPAMIL [Concomitant]
     Indication: HYPERTENSION
  11. OXYGEN [Concomitant]

REACTIONS (5)
  - LUNG INFECTION [None]
  - NASAL DISORDER [None]
  - PARKINSON'S DISEASE [None]
  - PRODUCTIVE COUGH [None]
  - SINUSITIS [None]
